FAERS Safety Report 10041290 (Version 2)
Quarter: 2014Q1

REPORT INFORMATION
  Report Type: Spontaneous
  Country: US (occurrence: US)
  Receive Date: 20140327
  Receipt Date: 20140327
  Transmission Date: 20141002
  Serious: Yes (Other)
  Sender: FDA-Public Use
  Company Number: US-SA-2014SA035591

PATIENT
  Age: 71 Year
  Sex: Female

DRUGS (1)
  1. RENVELA [Suspect]
     Indication: HYPERPHOSPHATAEMIA
     Dosage: RENVELA 800 MG 2 TABLET 3 TIMES A DAY
     Route: 048
     Dates: start: 20140309, end: 20140315

REACTIONS (7)
  - Abasia [Unknown]
  - Joint swelling [Unknown]
  - Joint swelling [Unknown]
  - Arthralgia [Not Recovered/Not Resolved]
  - Joint effusion [Unknown]
  - Constipation [Unknown]
  - Pain [Unknown]
